FAERS Safety Report 8677131 (Version 2)
Quarter: 2012Q4

REPORT INFORMATION
  Report Type: Report from Study
  Country: US (occurrence: None)
  Receive Date: 20120705
  Receipt Date: 20120912
  Transmission Date: 20130627
  Serious: Yes (Death, Hospitalization, Disabling)
  Sender: FDA-Public Use
  Company Number: HGS1006-SL-02261

PATIENT
  Age: 72 Year
  Sex: Male
  Weight: 65.5 kg

DRUGS (11)
  1. BELIMUMAB [Suspect]
     Indication: SYSTEMIC LUPUS ERYTHEMATOSUS
     Dosage: 1 mg/kg, 1 in 28 D, Intravenous drip
     Route: 041
     Dates: start: 20040524
  2. BELIMUMAB [Suspect]
     Indication: SYSTEMIC LUPUS ERYTHEMATOSUS
     Dosage: 10 mg/kg, 1 in 28 D, Intravenous drip
     Route: 041
     Dates: start: 20050623
  3. BELIMUMAB [Suspect]
     Indication: SYSTEMIC LUPUS ERYTHEMATOSUS
     Dosage: 10 mg/kg, 1 in 28 D, Intravenous drip
     Route: 041
     Dates: start: 20051208
  4. HYDROXYCHLOROQUINE SULFATE [Concomitant]
  5. CALCIUM CARBONATE [Concomitant]
  6. ACETYLSALICYLIC ACID (ACETYSALICYLIC ACID) (ACETYLSALICYLIC ACID) [Concomitant]
  7. MULTIVITAMINS (MULTIVITAMINS) (ERGOCALCIFEROL, ASCORBIC ACID, FOLIC ACID, THIAMINE HYDROCHOLRIDE, RE [Concomitant]
  8. IBUPROFEN [Concomitant]
  9. LEXAPRO (ESCITALOPRAM OXALATE) (ESCITALOPRAM OXALATE) [Concomitant]
  10. SILODOSIN (SILODOSIN) (SILODOSIN) [Concomitant]
  11. ALPRAZOLAM [Concomitant]

REACTIONS (45)
  - Protein total decreased [None]
  - Blood albumin decreased [None]
  - Intervertebral discitis [None]
  - Osteomyelitis [None]
  - Extradural abscess [None]
  - Respiratory failure [None]
  - Deep vein thrombosis [None]
  - Fall [None]
  - Pneumonia aspiration [None]
  - Injury [None]
  - Atelectasis [None]
  - Haemoglobin decreased [None]
  - Haematocrit decreased [None]
  - Platelet count increased [None]
  - Blood urea increased [None]
  - Blood alkaline phosphatase increased [None]
  - Aspartate aminotransferase increased [None]
  - Alanine aminotransferase increased [None]
  - Blood creatine phosphokinase MB increased [None]
  - White blood cells urine positive [None]
  - Blood urine present [None]
  - Bacterial test positive [None]
  - Urine leukocyte esterase positive [None]
  - Intervertebral disc protrusion [None]
  - Skeletal injury [None]
  - Extradural haematoma [None]
  - Spinal cord compression [None]
  - Toe amputation [None]
  - Dysphagia [None]
  - Lung infection [None]
  - Atrial flutter [None]
  - Electrocardiogram ST-T segment abnormal [None]
  - Mitral valve calcification [None]
  - Blood glucose decreased [None]
  - Cardio-respiratory arrest [None]
  - Mitral valve incompetence [None]
  - Aortic valve calcification [None]
  - Procalcitonin increased [None]
  - Activated partial thromboplastin time prolonged [None]
  - International normalised ratio increased [None]
  - Blood potassium increased [None]
  - Blood chloride increased [None]
  - Carbon dioxide decreased [None]
  - Blood creatinine increased [None]
  - Blood calcium decreased [None]
